FAERS Safety Report 21440419 (Version 1)
Quarter: 2022Q4

REPORT INFORMATION
  Report Type: Spontaneous
  Country: US (occurrence: US)
  Receive Date: 20221011
  Receipt Date: 20221011
  Transmission Date: 20230112
  Serious: Yes (Hospitalization)
  Sender: FDA-Public Use
  Company Number: US-AMNEAL PHARMACEUTICALS-2022-AMRX-02661

PATIENT
  Age: 24 Year
  Sex: Male
  Weight: 57.592 kg

DRUGS (5)
  1. LIORESAL [Suspect]
     Active Substance: BACLOFEN
     Indication: Cerebral palsy
     Dosage: 96.85 ?G, \DAY
     Route: 037
     Dates: start: 20210819
  2. LIORESAL [Suspect]
     Active Substance: BACLOFEN
     Indication: Muscle spasticity
  3. RA VITAMIN D3 50 [Concomitant]
     Dosage: 2000 IU, 1X/DAY
  4. METOCLOPRAMIDE [Concomitant]
     Active Substance: METOCLOPRAMIDE
     Dosage: 5 ML, 2X/DAY
  5. LEVOTHYROXINE [Concomitant]
     Active Substance: LEVOTHYROXINE
     Dosage: 1 TABLET MON, WED, FRI, + SUN, AS DIRECTED

REACTIONS (3)
  - Muscle spasticity [Not Recovered/Not Resolved]
  - Device infusion issue [Unknown]
  - Complication associated with device [Recovered/Resolved]

NARRATIVE: CASE EVENT DATE: 20210101
